FAERS Safety Report 7342973-3 (Version None)
Quarter: 2011Q1

REPORT INFORMATION
  Report Type: 
  Country: None (occurrence: None)
  Receive Date: 20110310
  Receipt Date: 20110224
  Transmission Date: 20110831
  Serious: Yes (Hospitalization)
  Sender: FDA-Public Use
  Company Number: PHFR2011GB01176

PATIENT
  Sex: Female

DRUGS (3)
  1. BENDROFLUMETHIAZIDE [Concomitant]
  2. CANDESARTAN [Concomitant]
  3. FEMARA [Suspect]
     Indication: URINARY TRACT INFECTION
     Dosage: 2.5 MG, UNK
     Route: 048
     Dates: start: 20100101, end: 20110201

REACTIONS (1)
  - CYSTITIS NONINFECTIVE [None]
